FAERS Safety Report 24202032 (Version 2)
Quarter: 2024Q4

REPORT INFORMATION
  Report Type: Spontaneous
  Country: US (occurrence: US)
  Receive Date: 20240812
  Receipt Date: 20241105
  Transmission Date: 20250115
  Serious: No
  Sender: BRISTOL-MYERS SQUIBB COMPANY
  Company Number: US-BRISTOL-MYERS SQUIBB COMPANY-2024-125374

PATIENT
  Age: 78 Year
  Sex: Male

DRUGS (9)
  1. REVLIMID [Suspect]
     Active Substance: LENALIDOMIDE
     Indication: Plasma cell myeloma
     Route: 048
  2. REVLIMID [Suspect]
     Active Substance: LENALIDOMIDE
     Route: 048
     Dates: start: 20240717, end: 20240814
  3. ACYCLOVIR [Concomitant]
     Active Substance: ACYCLOVIR
     Route: 048
  4. ASPIRIN [Concomitant]
     Active Substance: ASPIRIN
     Route: 048
  5. COENZYME Q10 [Concomitant]
     Active Substance: DIETARY SUPPLEMENT\UBIDECARENONE
  6. DEXAMETHASONE [Concomitant]
     Active Substance: DEXAMETHASONE
     Dosage: DAYS 2, 9, 16 + 21 DAY CYCLE
  7. FERROUS SULFATE [Concomitant]
     Active Substance: FERROUS SULFATE
  8. BORTEZOMIB [Concomitant]
     Active Substance: BORTEZOMIB
     Dosage: DAYS 1, 8, 15 OF 28 DAY CYCLE
  9. DARZALEX [Concomitant]
     Active Substance: DARATUMUMAB
     Dosage: DAYS 1, 8, 15 OF 28 DAY CYCLE

REACTIONS (2)
  - Off label use [Unknown]
  - Adverse event [Unknown]
